FAERS Safety Report 5892407-0 (Version None)
Quarter: 2008Q3

REPORT INFORMATION
  Report Type: 
  Country: None (occurrence: None)
  Receive Date: 20080919
  Receipt Date: 20080919
  Transmission Date: 20090109
  Serious: No
  Sender: FDA-Public Use
  Company Number: None

PATIENT
  Age: 53 Year
  Sex: Female
  Weight: 59.4212 kg

DRUGS (2)
  1. LYRICA [Suspect]
     Indication: BACK PAIN
     Dosage: 50MG 1 AT NIGHT PO
     Route: 048
     Dates: start: 20080916, end: 20080918
  2. LYRICA [Suspect]
     Indication: FIBROMYALGIA
     Dosage: 50MG 1 AT NIGHT PO
     Route: 048
     Dates: start: 20080916, end: 20080918

REACTIONS (18)
  - CHILLS [None]
  - DIARRHOEA [None]
  - DIZZINESS [None]
  - EYE DISORDER [None]
  - FEELING ABNORMAL [None]
  - FLATULENCE [None]
  - HEADACHE [None]
  - HYPERHIDROSIS [None]
  - INSOMNIA [None]
  - MIDDLE INSOMNIA [None]
  - MUSCULOSKELETAL STIFFNESS [None]
  - MYDRIASIS [None]
  - NAUSEA [None]
  - NECK PAIN [None]
  - PALPITATIONS [None]
  - RESTLESSNESS [None]
  - SKIN ODOUR ABNORMAL [None]
  - VISION BLURRED [None]
